FAERS Safety Report 7638237-0 (Version None)
Quarter: 2011Q3

REPORT INFORMATION
  Report Type: 
  Country: None (occurrence: None)
  Receive Date: 20110727
  Receipt Date: 20110724
  Transmission Date: 20111222
  Serious: Yes (Hospitalization, Other)
  Sender: FDA-Public Use
  Company Number: HU-PFIZER INC-2011165655

PATIENT
  Age: 35 Year
  Sex: Male

DRUGS (6)
  1. METHYLPREDNISOLONE [Suspect]
     Dosage: 40 MG, 1X/DAY
  2. METHOTREXATE SODIUM [Suspect]
     Indication: PSORIASIS
     Dosage: 10 MG, WEEKLY
  3. CYCLOSPORINE [Suspect]
     Indication: PSORIASIS
     Dosage: 4 MG/KG, 1X/DAY
  4. METHYLPREDNISOLONE [Suspect]
     Indication: PSORIASIS
     Dosage: 12 MG, 1X/DAY
  5. CYCLOSPORINE [Suspect]
     Dosage: 200 MG, 2X/DAY
  6. CYCLOSPORINE [Suspect]
     Dosage: 5 MG/KG, 1X/DAY
     Dates: start: 20080301

REACTIONS (3)
  - SUICIDE ATTEMPT [None]
  - DEPRESSION [None]
  - PSORIASIS [None]
